FAERS Safety Report 5492019-7 (Version None)
Quarter: 2007Q4

REPORT INFORMATION
  Report Type: 
  Country: None (occurrence: None)
  Receive Date: 20071018
  Receipt Date: 20071018
  Transmission Date: 20080405
  Serious: No
  Sender: FDA-Public Use
  Company Number: None

PATIENT
  Age: 62 Year
  Sex: Male

DRUGS (1)
  1. COLESTIPOL HYDROCHLORIDE [Suspect]
     Indication: HYPERLIPIDAEMIA
     Dosage: 2GM  BID  PO
     Route: 048
     Dates: start: 20070907, end: 20070919

REACTIONS (1)
  - DIZZINESS [None]
